FAERS Safety Report 7735814-3 (Version None)
Quarter: 2011Q3

REPORT INFORMATION
  Report Type: 
  Country: None (occurrence: None)
  Receive Date: 20110908
  Receipt Date: 20110826
  Transmission Date: 20111222
  Serious: No
  Sender: FDA-Public Use
  Company Number: US-BIOGENIDEC-2011BI033202

PATIENT
  Age: 35 Year
  Sex: Female

DRUGS (3)
  1. AVONEX [Concomitant]
     Indication: MULTIPLE SCLEROSIS
     Route: 030
     Dates: start: 20100312, end: 20100712
  2. TYSABRI [Suspect]
     Indication: MULTIPLE SCLEROSIS
     Route: 030
     Dates: start: 20100312, end: 20100712
  3. TYSABRI [Suspect]
     Route: 042
     Dates: start: 20110824

REACTIONS (3)
  - URTICARIA [None]
  - FEELING HOT [None]
  - FLUSHING [None]
